FAERS Safety Report 21147770 (Version 1)
Quarter: 2022Q3

REPORT INFORMATION
  Report Type: Spontaneous
  Country: GB (occurrence: GB)
  Receive Date: 20220729
  Receipt Date: 20220729
  Transmission Date: 20221027
  Serious: Yes (Hospitalization, Other)
  Sender: FDA-Public Use
  Company Number: GB-SA-SAC20220719000163

PATIENT
  Sex: Male

DRUGS (4)
  1. CYTARABINE [Suspect]
     Active Substance: CYTARABINE
     Dosage: 17.5 MG, QD
     Route: 042
     Dates: start: 20180618, end: 20180622
  2. GEMTUZUMAB OZOGAMICIN [Suspect]
     Active Substance: GEMTUZUMAB OZOGAMICIN
     Indication: Acute myeloid leukaemia
     Dosage: 1.8 MG, FREQUECNY OTHER;
     Route: 042
     Dates: start: 20180320, end: 20180326
  3. MITOXANTRONE HYDROCHLORIDE [Suspect]
     Active Substance: MITOXANTRONE HYDROCHLORIDE
     Dosage: 7 MG/M2, QD
     Route: 042
     Dates: start: 20180317, end: 20180507
  4. FLUDARABINE PHOSPHATE [Suspect]
     Active Substance: FLUDARABINE PHOSPHATE
     Indication: Acute myeloid leukaemia
     Dosage: 1200 MG, QD
     Route: 042
     Dates: start: 20180618, end: 20180622

REACTIONS (1)
  - Myelosuppression [Recovered/Resolved]
